FAERS Safety Report 18319699 (Version 2)
Quarter: 2021Q2

REPORT INFORMATION
  Report Type: Spontaneous
  Country: CA (occurrence: CA)
  Receive Date: 20200929
  Receipt Date: 20210408
  Transmission Date: 20210717
  Serious: Yes (Life-Threatening, Other)
  Sender: FDA-Public Use
  Company Number: CA-SUN PHARMACEUTICAL INDUSTRIES LTD-2020R1-261777

PATIENT
  Age: 44 Year
  Sex: Female

DRUGS (18)
  1. DAPSONE. [Suspect]
     Active Substance: DAPSONE
     Indication: HIDRADENITIS
     Dosage: UNK
     Route: 061
  2. MOXIFLOXACIN. [Suspect]
     Active Substance: MOXIFLOXACIN
     Indication: HIDRADENITIS
     Dosage: UNK
     Route: 065
  3. DOXYCYCLINE. [Suspect]
     Active Substance: DOXYCYCLINE
     Indication: HIDRADENITIS
     Dosage: UNK
     Route: 065
  4. METRONIDAZOLE. [Suspect]
     Active Substance: METRONIDAZOLE
     Indication: HIDRADENITIS
     Dosage: UNK
     Route: 061
  5. ZINC. [Suspect]
     Active Substance: ZINC
     Indication: HIDRADENITIS
     Dosage: UNK
     Route: 065
  6. ISOTRETINOIN. [Suspect]
     Active Substance: ISOTRETINOIN
     Indication: HIDRADENITIS
     Dosage: UNK
     Route: 065
  7. RIFAMPICIN [Suspect]
     Active Substance: RIFAMPIN
     Indication: HIDRADENITIS
     Dosage: UNK
     Route: 065
  8. TRIAMCINOLONE [Suspect]
     Active Substance: TRIAMCINOLONE
     Indication: HIDRADENITIS
     Dosage: UNK
     Route: 026
  9. ERTAPENEM. [Suspect]
     Active Substance: ERTAPENEM SODIUM
     Indication: HIDRADENITIS
     Dosage: UNK
     Route: 042
  10. MINOCYCLINE [Suspect]
     Active Substance: MINOCYCLINE HYDROCHLORIDE
     Indication: HIDRADENITIS
     Dosage: UNK
     Route: 048
  11. PREDNISONE. [Suspect]
     Active Substance: PREDNISONE
     Indication: HIDRADENITIS
     Dosage: UNK
     Route: 065
  12. TETRACYCLINE [Suspect]
     Active Substance: TETRACYCLINE
     Indication: HIDRADENITIS
     Dosage: UNK
     Route: 065
  13. NORITATE [Suspect]
     Active Substance: METRONIDAZOLE
     Indication: HIDRADENITIS
     Dosage: UNK
     Route: 061
  14. AMOXICILLIN AND CLAVULANATE POTASSIUM [Suspect]
     Active Substance: AMOXICILLIN\CLAVULANATE POTASSIUM
     Indication: HIDRADENITIS
     Dosage: UNK
     Route: 065
  15. DAPSONE. [Suspect]
     Active Substance: DAPSONE
     Indication: HIDRADENITIS
     Dosage: UNK
     Route: 065
  16. CLINDAMYCIN. [Suspect]
     Active Substance: CLINDAMYCIN
     Indication: HIDRADENITIS
     Dosage: UNK
     Route: 065
  17. CLINDAMYCIN. [Suspect]
     Active Substance: CLINDAMYCIN
     Indication: HIDRADENITIS
     Dosage: UNK
     Route: 061
  18. METRONIDAZOLE. [Suspect]
     Active Substance: METRONIDAZOLE
     Indication: HIDRADENITIS
     Dosage: UNK
     Route: 065

REACTIONS (11)
  - Suicidal ideation [Unknown]
  - Treatment failure [Unknown]
  - Drug ineffective [Unknown]
  - Scar [Unknown]
  - Mobility decreased [Unknown]
  - Pain [Unknown]
  - Drug intolerance [Unknown]
  - Skin odour abnormal [Unknown]
  - Wound secretion [Unknown]
  - Skin lesion [Unknown]
  - Condition aggravated [Unknown]
